FAERS Safety Report 8935868 (Version 1)
Quarter: 2012Q4

REPORT INFORMATION
  Report Type: 
  Country: BR (occurrence: BR)
  Receive Date: 20121130
  Receipt Date: 20121130
  Transmission Date: 20130627
  Serious: Yes (Hospitalization, Other)
  Sender: FDA-Public Use
  Company Number: BR-ASTRAZENECA-2012SE88421

PATIENT
  Age: 58 Year
  Sex: Female
  Weight: 70 kg

DRUGS (8)
  1. CRESTOR [Suspect]
     Indication: BLOOD CHOLESTEROL INCREASED
     Route: 048
     Dates: start: 2010
  2. CRESTOR [Suspect]
     Indication: BLOOD CHOLESTEROL INCREASED
     Dosage: GENERIC
     Route: 048
  3. ENDOSTRAN [Concomitant]
     Indication: OSTEOPOROSIS
     Route: 048
     Dates: start: 2006
  4. GALVUS [Concomitant]
     Indication: DIABETES MELLITUS
     Route: 048
     Dates: start: 2007, end: 2012
  5. GALVUS [Concomitant]
     Indication: DIABETES MELLITUS
     Route: 048
     Dates: start: 20121114
  6. METFORMIN [Concomitant]
     Indication: DIABETES MELLITUS
     Route: 048
     Dates: start: 2007, end: 2012
  7. DILTIAZEM [Concomitant]
     Route: 048
     Dates: start: 2010
  8. VICTOZA [Concomitant]
     Indication: DIABETES MELLITUS
     Route: 048
     Dates: start: 2012, end: 20121113

REACTIONS (2)
  - Chest discomfort [Recovered/Resolved]
  - Arterial occlusive disease [Unknown]
